FAERS Safety Report 7420345-0 (Version None)
Quarter: 2011Q2

REPORT INFORMATION
  Report Type: 
  Country: None (occurrence: None)
  Receive Date: 20110418
  Receipt Date: 20110402
  Transmission Date: 20111010
  Serious: No
  Sender: FDA-Public Use
  Company Number: US-B.I. PHARMACEUTICALS,INC./RIDGEFIELD-2011-BP-10738BP

PATIENT
  Sex: Male

DRUGS (2)
  1. PRADAXA [Suspect]
  2. ACETAMINOPHEN [Concomitant]

REACTIONS (1)
  - DYSPNOEA [None]
